FAERS Safety Report 7026945-4 (Version None)
Quarter: 2010Q4

REPORT INFORMATION
  Report Type: 
  Country: None (occurrence: None)
  Receive Date: 20101004
  Receipt Date: 20100927
  Transmission Date: 20110411
  Serious: Yes (Life-Threatening, Hospitalization)
  Sender: FDA-Public Use
  Company Number: D0068965A

PATIENT
  Age: 70 Year
  Sex: Female
  Weight: 94 kg

DRUGS (14)
  1. PAROXETINE HCL [Suspect]
     Indication: DEPRESSION
     Dosage: 20MG PER DAY
     Route: 048
  2. ASPIRIN [Suspect]
     Indication: HEADACHE
     Dosage: 500MG THREE TIMES PER DAY
     Route: 048
     Dates: start: 20081010, end: 20081011
  3. ARCOXIA [Suspect]
     Dosage: 60MG TWICE PER DAY
     Route: 048
     Dates: start: 20080101, end: 20081011
  4. CLEXANE [Suspect]
     Dosage: 60MG PER DAY
     Route: 058
     Dates: start: 20080909, end: 20081006
  5. BERLTHYROX [Concomitant]
     Indication: HYPOTHYROIDISM
     Dosage: 100MCG PER DAY
     Route: 048
  6. REMERGIL [Concomitant]
     Indication: DEPRESSION
     Dosage: 30MG PER DAY
     Route: 048
  7. VALORON N [Concomitant]
     Dosage: 1UNIT TWICE PER DAY
     Route: 048
     Dates: start: 20080101
  8. BISOHEXAL [Concomitant]
     Dosage: 5MG PER DAY
     Route: 048
     Dates: start: 20080601
  9. ATACAND [Concomitant]
     Dosage: 156MG PER DAY
     Route: 048
     Dates: start: 20080601
  10. AMLODIPINE [Concomitant]
     Dosage: 2.5MG PER DAY
     Route: 048
     Dates: start: 20080601
  11. SIMVASTATIN [Concomitant]
     Dosage: 20MG PER DAY
     Route: 048
  12. ALLOPURINOL [Concomitant]
     Dosage: 300MCG PER DAY
     Route: 048
  13. HYDROCHLOROTHIAZIDE [Concomitant]
     Dosage: 12.5MG PER DAY
     Route: 048
     Dates: start: 20080601
  14. NOVAMINSULFON [Concomitant]
     Dosage: 30UNIT FOUR TIMES PER DAY
     Route: 048
     Dates: start: 20080101

REACTIONS (9)
  - DECREASED APPETITE [None]
  - DRUG INTERACTION [None]
  - GASTROINTESTINAL HAEMORRHAGE [None]
  - HAEMATEMESIS [None]
  - HEADACHE [None]
  - ILL-DEFINED DISORDER [None]
  - MELAENA [None]
  - NAUSEA [None]
  - PRESYNCOPE [None]
